FAERS Safety Report 7218628-2 (Version None)
Quarter: 2011Q1

REPORT INFORMATION
  Report Type: 
  Country: None (occurrence: None)
  Receive Date: 20110110
  Receipt Date: 20110103
  Transmission Date: 20110831
  Serious: Yes (Hospitalization)
  Sender: FDA-Public Use
  Company Number: PHHO2011US00618

PATIENT
  Sex: Female
  Weight: 50 kg

DRUGS (3)
  1. ULTRACET [Concomitant]
  2. AFINITOR [Suspect]
     Indication: B-CELL LYMPHOMA
     Dosage: 10 MG, DAILY
     Route: 048
     Dates: start: 20101124
  3. ACYCLOVIR [Concomitant]

REACTIONS (7)
  - URINARY TRACT INFECTION [None]
  - GASTRIC VARICES [None]
  - FAECALOMA [None]
  - HYPERCALCAEMIA [None]
  - ABDOMINAL DISTENSION [None]
  - NEOPLASM MALIGNANT [None]
  - PNEUMATOSIS INTESTINALIS [None]
